FAERS Safety Report 6505507-9 (Version None)
Quarter: 2009Q4

REPORT INFORMATION
  Report Type: 
  Country: None (occurrence: None)
  Receive Date: 20091218
  Receipt Date: 20091209
  Transmission Date: 20100525
  Serious: Yes (Other)
  Sender: FDA-Public Use
  Company Number: BR-PFIZER INC-2009307958

PATIENT
  Age: 28 Year
  Sex: Female

DRUGS (1)
  1. DEPO-PROVERA [Suspect]
     Indication: CONTRACEPTION
     Dosage: 150 MG, EVERY 3 MONTHS
     Route: 030
     Dates: end: 20091101

REACTIONS (6)
  - AMENORRHOEA [None]
  - DRUG INEFFECTIVE [None]
  - LYMPHATIC DISORDER [None]
  - METRORRHAGIA [None]
  - OESOPHAGITIS [None]
  - UNINTENDED PREGNANCY [None]
